FAERS Safety Report 8990702 (Version 2)
Quarter: 2013Q1

REPORT INFORMATION
  Report Type: Spontaneous
  Country: US (occurrence: US)
  Receive Date: 20121228
  Receipt Date: 20130109
  Transmission Date: 20140127
  Serious: No
  Sender: FDA-Public Use
  Company Number: US-PFIZER INC-2012328429

PATIENT
  Age: 61 Year
  Sex: Female
  Weight: 51.7 kg

DRUGS (4)
  1. CENTRUM SILVER WOMEN^S 50+ [Suspect]
     Indication: ROUTINE HEALTH MAINTENANCE
     Dosage: 1 TABLET, DAILY MID MORNING
     Route: 048
     Dates: start: 201212, end: 20121221
  2. ADVIL [Suspect]
     Indication: HEADACHE
     Dosage: 200 MG, ONE CAPSULE AS NEEDED
     Route: 048
  3. VITAMINS [Suspect]
     Dosage: UNK
  4. BENADRYL [Suspect]
     Indication: HEADACHE
     Dosage: 25 MG, ONCE
     Dates: start: 201212, end: 201212

REACTIONS (2)
  - Drug ineffective [Unknown]
  - Headache [Recovering/Resolving]
